FAERS Safety Report 7458292-0 (Version None)
Quarter: 2011Q2

REPORT INFORMATION
  Report Type: 
  Country: None (occurrence: None)
  Receive Date: 20110504
  Receipt Date: 20110421
  Transmission Date: 20111010
  Serious: Yes (Hospitalization, Other)
  Sender: FDA-Public Use
  Company Number: US-ELI_LILLY_AND_COMPANY-US201104006655

PATIENT
  Sex: Male

DRUGS (11)
  1. COQ10 [Concomitant]
  2. VITAMIN D [Concomitant]
  3. FORTEO [Suspect]
     Dosage: 20 UG, UNK
  4. FORTEO [Suspect]
     Dosage: 20 UG, UNK
     Dates: start: 20110401
  5. UNSPECIFIED HERBAL [Concomitant]
     Indication: URINARY INCONTINENCE
  6. DILTIAZEM [Concomitant]
     Dosage: 125 MG, UNK
  7. LIPITOR [Concomitant]
     Dosage: 20 MG, UNK
  8. ASPIRIN [Concomitant]
     Dosage: 162 MG, UNK
  9. DAILY VITAMINS [Concomitant]
  10. LEVOXYL [Concomitant]
     Dosage: 137 UG, UNK
  11. IRON [Concomitant]

REACTIONS (4)
  - HEPATIC ENZYME INCREASED [None]
  - HERPES VIRUS INFECTION [None]
  - SOMNOLENCE [None]
  - DIZZINESS [None]
